FAERS Safety Report 5447484-8 (Version None)
Quarter: 2007Q3

REPORT INFORMATION
  Report Type: 
  Country: None (occurrence: None)
  Receive Date: 20070910
  Receipt Date: 20070905
  Transmission Date: 20080115
  Serious: Yes (Hospitalization)
  Sender: FDA-Public Use
  Company Number: A0678895A

PATIENT
  Age: 71 Year
  Sex: Male

DRUGS (14)
  1. COREG [Suspect]
     Dosage: 25MG TWICE PER DAY
     Route: 048
     Dates: start: 20040101
  2. PLAVIX [Concomitant]
  3. PACERONE [Concomitant]
  4. WARFARIN [Concomitant]
  5. ASPIRIN [Concomitant]
  6. LEVOXINE [Concomitant]
  7. SPIRONOLACTONE [Concomitant]
  8. GLIPIZIDE [Concomitant]
  9. ALLOPURINOL [Concomitant]
  10. FUROSEMIDE [Concomitant]
  11. LIPITOR [Concomitant]
  12. DIAZEPAM [Concomitant]
  13. COLCHICINE [Concomitant]
  14. LORTAB [Concomitant]

REACTIONS (3)
  - ARRHYTHMIA [None]
  - CORONARY ARTERY OCCLUSION [None]
  - HEART RATE DECREASED [None]
